FAERS Safety Report 9234939 (Version 1)
Quarter: 2013Q2

REPORT INFORMATION
  Report Type: Spontaneous
  Country: US (occurrence: US)
  Receive Date: 20130416
  Receipt Date: 20130416
  Transmission Date: 20140414
  Serious: No
  Sender: FDA-Public Use
  Company Number: US-BANPHARM-20120341

PATIENT
  Sex: Female

DRUGS (1)
  1. NAPROXEN SODIUM 220 MG [Suspect]
     Indication: PAIN
     Dosage: 2 DF DAILY,
     Route: 048
     Dates: start: 201210, end: 201210

REACTIONS (1)
  - Nausea [Recovered/Resolved]
